FAERS Safety Report 25029851 (Version 1)
Quarter: 2025Q1

REPORT INFORMATION
  Report Type: Other
  Country: CA (occurrence: CA)
  Receive Date: 20250303
  Receipt Date: 20250303
  Transmission Date: 20250408
  Serious: Yes (Other)
  Sender: APOTEX
  Company Number: CA-APOTEX-2025AP002619

PATIENT
  Age: 29 Year
  Sex: Female

DRUGS (10)
  1. NAPROXEN SODIUM\SUMATRIPTAN SUCCINATE [Suspect]
     Active Substance: NAPROXEN SODIUM\SUMATRIPTAN SUCCINATE
     Indication: Migraine
     Route: 065
  2. NADOLOL [Suspect]
     Active Substance: NADOLOL
     Indication: Migraine
     Route: 065
  3. NORTRIPTYLINE [Suspect]
     Active Substance: NORTRIPTYLINE
     Indication: Migraine
     Route: 065
  4. PREGABALIN [Suspect]
     Active Substance: PREGABALIN
     Indication: Migraine
     Route: 065
  5. RIZATRIPTAN [Suspect]
     Active Substance: RIZATRIPTAN
     Indication: Migraine
     Route: 065
  6. VALPROIC ACID [Suspect]
     Active Substance: VALPROIC ACID
     Indication: Migraine
     Route: 065
  7. SUMATRIPTAN [Suspect]
     Active Substance: SUMATRIPTAN
     Indication: Headache
     Route: 058
  8. TRINTELLIX [Suspect]
     Active Substance: VORTIOXETINE HYDROBROMIDE
     Indication: Migraine
     Route: 065
  9. XOLAIR [Suspect]
     Active Substance: OMALIZUMAB
     Indication: Urticaria chronic
     Route: 065
  10. AJOVY [Suspect]
     Active Substance: FREMANEZUMAB-VFRM
     Indication: Migraine
     Route: 065

REACTIONS (5)
  - Anal abscess [Unknown]
  - Impaired healing [Unknown]
  - Infection [Unknown]
  - Skin infection [Unknown]
  - Drug ineffective [Unknown]
